FAERS Safety Report 8234499-X (Version None)
Quarter: 2012Q1

REPORT INFORMATION
  Report Type: 
  Country: None (occurrence: None)
  Receive Date: 20120326
  Receipt Date: 20120313
  Transmission Date: 20120608
  Serious: Yes (Life-Threatening, Hospitalization)
  Sender: FDA-Public Use
  Company Number: JP-SANOFI-AVENTIS-2012SA019824

PATIENT
  Age: 10 Year
  Sex: Female
  Weight: 34 kg

DRUGS (15)
  1. ACETAMINOPHEN [Concomitant]
     Dates: start: 20110318, end: 20110321
  2. ACYCLOVIR [Concomitant]
     Dates: start: 20110520
  3. OFORTA [Suspect]
     Indication: BONE MARROW CONDITIONING REGIMEN
     Route: 065
     Dates: start: 20110318, end: 20110321
  4. RED BLOOD CELLS, CONCENTRATED [Concomitant]
     Dates: start: 20110305
  5. CEFTAZIDIME [Concomitant]
     Dates: start: 20110305
  6. METHOTREXATE [Concomitant]
     Dates: start: 20110326, end: 20110710
  7. SULFAMETHOPRIM [Concomitant]
     Dates: start: 20110228
  8. FILGRASTIM [Concomitant]
     Dates: start: 20110305, end: 20110513
  9. ALL OTHER THERAPEUTIC PRODUCTS [Concomitant]
     Dates: start: 20110228
  10. MICAFUNGIN SODIUM [Concomitant]
     Dates: start: 20110318
  11. CYCLOPHOSPHAMIDE [Concomitant]
     Dates: start: 20110318, end: 20110321
  12. PLATELETS [Concomitant]
     Dates: start: 20110317
  13. TACROLIMUS [Concomitant]
     Dates: start: 20110326, end: 20110623
  14. ANTI-THYMOCYTE GLOBULIN EQUINE NOS [Suspect]
     Indication: BONE MARROW CONDITIONING REGIMEN
     Route: 042
     Dates: start: 20110318, end: 20110321
  15. METHYLPREDNISOLONE SODIUM SUCCINATE [Concomitant]
     Dates: start: 20110318, end: 20110321

REACTIONS (4)
  - POST TRANSPLANT LYMPHOPROLIFERATIVE DISORDER [None]
  - PULMONARY HYPERTENSION [None]
  - ACUTE GRAFT VERSUS HOST DISEASE IN SKIN [None]
  - CARDIAC FAILURE [None]
